FAERS Safety Report 17404893 (Version 7)
Quarter: 2021Q4

REPORT INFORMATION
  Report Type: Report from Study
  Country: NL (occurrence: NL)
  Receive Date: 20200211
  Receipt Date: 20211229
  Transmission Date: 20220304
  Serious: Yes (Hospitalization)
  Sender: FDA-Public Use
  Company Number: NL-ABBVIE-17K-114-2084746-00

PATIENT
  Sex: Male
  Weight: 94 kg

DRUGS (15)
  1. CARBIDOPA\LEVODOPA [Suspect]
     Active Substance: CARBIDOPA\LEVODOPA
     Indication: Parkinson^s disease
     Dosage: MD 15.5, CD 3.7, ED 3
     Route: 050
     Dates: start: 20170530, end: 2018
  2. CARBIDOPA\LEVODOPA [Suspect]
     Active Substance: CARBIDOPA\LEVODOPA
     Dosage: MD:15.5, CD:3.9, ED:3.0
     Route: 050
     Dates: start: 2018
  3. CARBIDOPA\LEVODOPA [Suspect]
     Active Substance: CARBIDOPA\LEVODOPA
     Route: 050
  4. CARBIDOPA\LEVODOPA [Suspect]
     Active Substance: CARBIDOPA\LEVODOPA
     Dosage: MD:15.2,CD:3.9, ED:3.0;16 HOUR ADMINISTRATION.
     Route: 050
  5. CARBIDOPA\LEVODOPA [Suspect]
     Active Substance: CARBIDOPA\LEVODOPA
     Dosage: INCREASED CONTINUOUS DOSE BY 0.2 ML/HR, MD: 15.2, CD: 4.1 ED: 3.0; 16 HOUR ADMINISTRATION
     Route: 050
  6. CARBIDOPA\LEVODOPA [Suspect]
     Active Substance: CARBIDOPA\LEVODOPA
     Dosage: MD 15.2 ML; CD 4.3 ML/H; ED 3.0 ML
     Route: 050
  7. ROPINIROLE [Concomitant]
     Active Substance: ROPINIROLE
     Indication: Product used for unknown indication
     Dosage: 4MG
     Route: 065
     Dates: end: 2019
  8. ROPINIROLE [Concomitant]
     Active Substance: ROPINIROLE
     Dosage: 2MG
     Route: 065
     Dates: end: 2019
  9. EXELON [Concomitant]
     Active Substance: RIVASTIGMINE TARTRATE
     Indication: Hallucination
  10. LACTULOSE [Concomitant]
     Active Substance: LACTULOSE
     Indication: Abnormal faeces
     Dosage: IF NEEDED
  11. RIVASTIGMINE [Concomitant]
     Active Substance: RIVASTIGMINE
     Indication: Parkinson^s disease
     Dosage: 13.3 MG/24 HR
  12. QUETIAPINE [Concomitant]
     Active Substance: QUETIAPINE
     Indication: Parkinson^s disease
  13. BENSERAZIDE HYDROCHLORIDE\LEVODOPA [Concomitant]
     Active Substance: BENSERAZIDE HYDROCHLORIDE\LEVODOPA
     Indication: Parkinson^s disease
  14. POLYETHYLENE GLYCOLS [Concomitant]
     Active Substance: POLYETHYLENE GLYCOLS
     Indication: Stool analysis
  15. MOVICOLON [Concomitant]
     Active Substance: POLYETHYLENE GLYCOL 3350\POTASSIUM CHLORIDE\SODIUM BICARBONATE\SODIUM CHLORIDE
     Indication: Product used for unknown indication

REACTIONS (53)
  - Cerebral disorder [Not Recovered/Not Resolved]
  - Poor quality sleep [Recovered/Resolved]
  - Faeces hard [Not Recovered/Not Resolved]
  - Cogwheel rigidity [Not Recovered/Not Resolved]
  - Social avoidant behaviour [Not Recovered/Not Resolved]
  - Wrong technique in product usage process [Unknown]
  - Incontinence [Not Recovered/Not Resolved]
  - Somnolence [Not Recovered/Not Resolved]
  - Cognitive disorder [Not Recovered/Not Resolved]
  - Appetite disorder [Not Recovered/Not Resolved]
  - Amnesia [Not Recovered/Not Resolved]
  - Mobility decreased [Not Recovered/Not Resolved]
  - Wheelchair user [Unknown]
  - Gait inability [Unknown]
  - Dystonia [Not Recovered/Not Resolved]
  - Device occlusion [Unknown]
  - Fall [Not Recovered/Not Resolved]
  - Weight decreased [Recovered/Resolved]
  - Abnormal dreams [Recovered/Resolved]
  - Fear [Not Recovered/Not Resolved]
  - Dementia [Not Recovered/Not Resolved]
  - Quality of life decreased [Unknown]
  - Somnolence [Not Recovered/Not Resolved]
  - Nausea [Not Recovered/Not Resolved]
  - Hallucination, visual [Recovered/Resolved]
  - Confusional state [Not Recovered/Not Resolved]
  - Freezing phenomenon [Not Recovered/Not Resolved]
  - Motor dysfunction [Not Recovered/Not Resolved]
  - Stoma site irritation [Recovered/Resolved]
  - Stoma site induration [Recovered/Resolved]
  - Parkinson^s disease [Not Recovered/Not Resolved]
  - Therapeutic product effect incomplete [Not Recovered/Not Resolved]
  - On and off phenomenon [Recovered/Resolved]
  - Stoma site erythema [Recovered/Resolved]
  - Stoma site discharge [Recovered/Resolved]
  - Initial insomnia [Recovered/Resolved]
  - Middle insomnia [Unknown]
  - Hypokinesia [Not Recovered/Not Resolved]
  - Bradykinesia [Not Recovered/Not Resolved]
  - Stoma site inflammation [Recovered/Resolved]
  - Confusional state [Not Recovered/Not Resolved]
  - Dyskinesia [Recovered/Resolved]
  - Stoma site erythema [Recovered/Resolved]
  - Stoma site discharge [Recovered/Resolved]
  - Hallucination [Recovered/Resolved]
  - Akathisia [Recovered/Resolved]
  - Incoherent [Unknown]
  - Tension [Unknown]
  - Extra dose administered [Recovered/Resolved]
  - Memory impairment [Not Recovered/Not Resolved]
  - Hypophagia [Not Recovered/Not Resolved]
  - Memory impairment [Not Recovered/Not Resolved]
  - Stoma site erythema [Recovered/Resolved]

NARRATIVE: CASE EVENT DATE: 20170101
